FAERS Safety Report 13311929 (Version 1)
Quarter: 2017Q1

REPORT INFORMATION
  Report Type: Spontaneous
  Country: GB (occurrence: GB)
  Receive Date: 20170309
  Receipt Date: 20170309
  Transmission Date: 20170428
  Serious: Yes (Hospitalization)
  Sender: FDA-Public Use
  Company Number: GB-TEVA-745300ACC

PATIENT
  Age: 68 Year
  Sex: Female
  Weight: 60.77 kg

DRUGS (12)
  1. ASPIRIN. [Concomitant]
     Active Substance: ASPIRIN
  2. GABAPENTIN. [Concomitant]
     Active Substance: GABAPENTIN
  3. DIPYRIDAMOLE. [Concomitant]
     Active Substance: DIPYRIDAMOLE
  4. LEVETIRACETAM. [Concomitant]
     Active Substance: LEVETIRACETAM
  5. FUROSEMIDE. [Concomitant]
     Active Substance: FUROSEMIDE
  6. SPIRONOLACTONE. [Concomitant]
     Active Substance: SPIRONOLACTONE
  7. LANSOPRAZOLE. [Concomitant]
     Active Substance: LANSOPRAZOLE
  8. PARACETAMOL [Concomitant]
     Active Substance: ACETAMINOPHEN
  9. ATORVASTATIN [Concomitant]
     Active Substance: ATORVASTATIN
  10. OMEPRAZOLE. [Concomitant]
     Active Substance: OMEPRAZOLE
  11. METOPROLOL. [Suspect]
     Active Substance: METOPROLOL
     Indication: HEART RATE IRREGULAR
     Dosage: 100 MILLIGRAM DAILY;
     Route: 048
     Dates: start: 20161116
  12. CLOPIDOGREL [Concomitant]
     Active Substance: CLOPIDOGREL BISULFATE

REACTIONS (2)
  - Seizure [Not Recovered/Not Resolved]
  - Transient ischaemic attack [Not Recovered/Not Resolved]

NARRATIVE: CASE EVENT DATE: 20161220
